FAERS Safety Report 8443950-1 (Version None)
Quarter: 2012Q2

REPORT INFORMATION
  Report Type: 
  Country: None (occurrence: None)
  Receive Date: 20120618
  Receipt Date: 20120608
  Transmission Date: 20120825
  Serious: Yes (Disabling)
  Sender: FDA-Public Use
  Company Number: PHHY2012NL028336

PATIENT
  Age: 86 Year
  Sex: Female
  Weight: 50 kg

DRUGS (5)
  1. ASCAL [Concomitant]
  2. PROTON PUMP INHIBITORS [Concomitant]
  3. SIMVASTATIN [Concomitant]
  4. IMATINIB MESYLATE [Suspect]
     Indication: GASTROINTESTINAL STROMAL TUMOUR
     Dosage: 400 MG, ONCE DAILY
     Route: 048
     Dates: start: 20120106, end: 20120328
  5. BETAHISTINE [Concomitant]

REACTIONS (3)
  - EYE INFECTION [None]
  - STRABISMUS [None]
  - EYE DISCHARGE [None]
